FAERS Safety Report 6500105-5 (Version None)
Quarter: 2009Q4

REPORT INFORMATION
  Report Type: 
  Country: None (occurrence: None)
  Receive Date: 20091216
  Receipt Date: 20091207
  Transmission Date: 20100525
  Serious: Yes (Other)
  Sender: FDA-Public Use
  Company Number: DE-JNJFOC-20091202257

PATIENT
  Age: 16 Year
  Sex: Male

DRUGS (2)
  1. TOPAMAX [Suspect]
     Indication: DRUG USE FOR UNKNOWN INDICATION
     Route: 048
  2. KEPRA [Concomitant]
     Route: 065

REACTIONS (2)
  - MENIERE'S DISEASE [None]
  - SUDDEN HEARING LOSS [None]
